FAERS Safety Report 21438728 (Version 1)
Quarter: 2022Q4

REPORT INFORMATION
  Report Type: Report from Study
  Country: US (occurrence: US)
  Receive Date: 20221011
  Receipt Date: 20221011
  Transmission Date: 20230113
  Serious: Yes (Other)
  Sender: FDA-Public Use
  Company Number: US-VALIDUS PHARMACEUTICALS LLC-US-VDP-2022-015756

PATIENT

DRUGS (7)
  1. BUMEX [Suspect]
     Active Substance: BUMETANIDE
     Indication: Oedema peripheral
     Dosage: 1 MILLIGRAM, QD
     Route: 048
  2. BUMEX [Suspect]
     Active Substance: BUMETANIDE
     Dosage: 1 MILLIGRAM, BID (FRIDAY-SATURDAY-SUNDAY)
     Route: 048
     Dates: start: 202209, end: 202209
  3. TYVASO [Suspect]
     Active Substance: TREPROSTINIL
     Indication: Pulmonary arterial hypertension
     Dosage: DRY POWDER
     Route: 055
     Dates: start: 20220914
  4. TYVASO [Suspect]
     Active Substance: TREPROSTINIL
     Dosage: 16 MICROGRAM, QID, DRY POWDER
     Route: 055
     Dates: start: 202209, end: 202209
  5. TYVASO [Suspect]
     Active Substance: TREPROSTINIL
     Dosage: 32 MICROGRAM, QID, DRY POWDER
     Route: 055
     Dates: start: 202209
  6. TYVASO [Suspect]
     Active Substance: TREPROSTINIL
     Indication: Pulmonary arterial hypertension
     Dosage: UNK, DRY POWDER
     Route: 055
  7. TYVASO [Suspect]
     Active Substance: TREPROSTINIL
     Indication: Pulmonary arterial hypertension
     Dosage: UNK, DRY POWDER
     Route: 055

REACTIONS (10)
  - Syncope [Recovered/Resolved]
  - Pulmonary pain [Not Recovered/Not Resolved]
  - Cough [Unknown]
  - Oedema peripheral [Recovering/Resolving]
  - Neck pain [Not Recovered/Not Resolved]
  - Blood pressure decreased [Not Recovered/Not Resolved]
  - Fatigue [Not Recovered/Not Resolved]
  - Asthenia [Not Recovered/Not Resolved]
  - Incorrect dose administered [Unknown]
  - Chest pain [Not Recovered/Not Resolved]

NARRATIVE: CASE EVENT DATE: 20220901
